FAERS Safety Report 14653529 (Version 1)
Quarter: 2018Q1

REPORT INFORMATION
  Report Type: Spontaneous
  Country: US (occurrence: US)
  Receive Date: 20180319
  Receipt Date: 20180319
  Transmission Date: 20180509
  Serious: Yes (Hospitalization, Other)
  Sender: FDA-Public Use
  Company Number: US-LUPIN PHARMACEUTICALS INC.-2018-02104

PATIENT
  Age: 18 Year
  Sex: Male

DRUGS (3)
  1. AMLODIPINE [Suspect]
     Active Substance: AMLODIPINE BESYLATE
     Indication: PRODUCT USED FOR UNKNOWN INDICATION
     Dosage: INGESTED MULTIPLE PILLS
     Route: 048
  2. LISINOPRIL AND HCTZ [Suspect]
     Active Substance: HYDROCHLOROTHIAZIDE\LISINOPRIL
     Indication: PRODUCT USED FOR UNKNOWN INDICATION
     Dosage: INGESTED MULTIPLE PILLS
     Route: 048
  3. METFORMIN [Suspect]
     Active Substance: METFORMIN HYDROCHLORIDE
     Indication: PRODUCT USED FOR UNKNOWN INDICATION
     Dosage: INGESTED MULTIPLE PILLS
     Route: 048

REACTIONS (8)
  - Toxicity to various agents [Unknown]
  - Overdose [Unknown]
  - Hypotension [Recovering/Resolving]
  - Hypoglycaemia [Unknown]
  - Renal failure [Unknown]
  - Drug administration error [Unknown]
  - Vomiting [Unknown]
  - Lactic acidosis [Unknown]
